FAERS Safety Report 9058987 (Version 2)
Quarter: 2013Q1

REPORT INFORMATION
  Report Type: Report from Study
  Country: US (occurrence: US)
  Receive Date: 20130211
  Receipt Date: 20130215
  Transmission Date: 20140127
  Serious: Yes (Hospitalization)
  Sender: FDA-Public Use
  Company Number: US-ACTELION-A-NJ2013-78749

PATIENT
  Age: 65 Year
  Sex: Female

DRUGS (8)
  1. VENTAVIS [Suspect]
     Indication: PULMONARY ARTERIAL HYPERTENSION
     Dosage: UNK
     Route: 055
  2. TRACLEER [Suspect]
     Indication: PULMONARY ARTERIAL HYPERTENSION
     Dosage: UNK
     Route: 048
  3. TRACLEER [Suspect]
     Dosage: UNK
     Route: 048
     Dates: end: 201301
  4. ASPIRIN [Concomitant]
  5. DIGOXIN [Concomitant]
  6. FUROSEMIDE [Concomitant]
  7. EFFIENT [Concomitant]
  8. OXYGEN [Concomitant]

REACTIONS (10)
  - Walking distance test abnormal [Recovering/Resolving]
  - Condition aggravated [Recovering/Resolving]
  - Haemorrhage [Recovering/Resolving]
  - Mineral supplementation [Unknown]
  - Haemoglobin decreased [Unknown]
  - Transfusion [Unknown]
  - Oxygen saturation decreased [Unknown]
  - Loss of consciousness [Recovered/Resolved]
  - Fatigue [Recovering/Resolving]
  - Asthenia [Recovering/Resolving]
